FAERS Safety Report 5215160-2 (Version None)
Quarter: 2007Q1

REPORT INFORMATION
  Report Type: 
  Country: None (occurrence: None)
  Receive Date: 20070117
  Receipt Date: 20061229
  Transmission Date: 20070707
  Serious: Yes (Other)
  Sender: FDA-Public Use
  Company Number: FSC_0028_2007

PATIENT
  Age: 28 Year
  Sex: Male
  Weight: 80 kg

DRUGS (1)
  1. ISOPTIN [Suspect]
     Indication: HYPERTROPHIC CARDIOMYOPATHY
     Dosage: DF PO
     Route: 048
     Dates: start: 19990101, end: 20060220

REACTIONS (6)
  - INFERTILITY MALE [None]
  - PREGNANCY OF PARTNER [None]
  - SPERMATOZOA PROGRESSIVE MOTILITY ABNORMAL [None]
  - TERATOSPERMIA [None]
  - TRANSMISSION OF DRUG VIA SEMEN [None]
  - UREAPLASMA INFECTION [None]
